FAERS Safety Report 18867121 (Version 4)
Quarter: 2021Q4

REPORT INFORMATION
  Report Type: Spontaneous
  Country: AU (occurrence: AU)
  Receive Date: 20210209
  Receipt Date: 20211122
  Transmission Date: 20220303
  Serious: Yes (Hospitalization)
  Sender: FDA-Public Use
  Company Number: AU-MYLANLABS-2021M1007542

PATIENT
  Age: 60 Year
  Sex: Female

DRUGS (3)
  1. CLOZARIL [Suspect]
     Active Substance: CLOZAPINE
     Indication: Schizophrenia
     Dosage: 375 MILLIGRAM
     Route: 048
     Dates: start: 20050407
  2. CLOZARIL [Suspect]
     Active Substance: CLOZAPINE
     Dosage: 375 MILLIGRAM
     Route: 048
     Dates: end: 20210118
  3. CLOZARIL [Suspect]
     Active Substance: CLOZAPINE
     Dosage: 400 MILLIGRAM
     Route: 048
     Dates: start: 20050407, end: 20211101

REACTIONS (3)
  - Psychotic disorder [Unknown]
  - Stress [Unknown]
  - Treatment noncompliance [Unknown]

NARRATIVE: CASE EVENT DATE: 20210118
